FAERS Safety Report 7477383-1 (Version None)
Quarter: 2011Q2

REPORT INFORMATION
  Report Type: 
  Country: None (occurrence: None)
  Receive Date: 20110513
  Receipt Date: 20110504
  Transmission Date: 20111010
  Serious: No
  Sender: FDA-Public Use
  Company Number: US-BIOGENIDEC-2011BI016961

PATIENT
  Sex: Female

DRUGS (4)
  1. TYSABRI [Suspect]
     Route: 042
     Dates: start: 20080506, end: 20090528
  2. TYSABRI [Suspect]
     Indication: MULTIPLE SCLEROSIS
     Route: 042
     Dates: start: 20100205
  3. AVONEX [Concomitant]
     Indication: MULTIPLE SCLEROSIS
     Route: 030
  4. AVONEX [Concomitant]
     Route: 030
     Dates: start: 19970101

REACTIONS (1)
  - ABASIA [None]
